FAERS Safety Report 19979510 (Version 5)
Quarter: 2022Q1

REPORT INFORMATION
  Report Type: Report from Study
  Country: US (occurrence: US)
  Receive Date: 20211021
  Receipt Date: 20220128
  Transmission Date: 20220424
  Serious: Yes (Hospitalization)
  Sender: FDA-Public Use
  Company Number: US-ALNYLAM PHARMACEUTICALS, INC.-ALN-2021-002619

PATIENT

DRUGS (1)
  1. ONPATTRO [Suspect]
     Active Substance: PATISIRAN SODIUM
     Indication: Product used for unknown indication
     Dosage: 30 MILLIGRAM, Q3W
     Route: 042

REACTIONS (5)
  - Thrombosis [Recovered/Resolved]
  - Cardiac pacemaker insertion [Recovered/Resolved]
  - Cardiac disorder [Unknown]
  - Product dose omission issue [Recovered/Resolved]
  - Therapy interrupted [Unknown]
